FAERS Safety Report 20375082 (Version 1)
Quarter: 2022Q1

REPORT INFORMATION
  Report Type: Spontaneous
  Country: IT (occurrence: IT)
  Receive Date: 20220125
  Receipt Date: 20220125
  Transmission Date: 20220423
  Serious: Yes (Other)
  Sender: FDA-Public Use
  Company Number: IT-MYLANLABS-2022M1007376

PATIENT
  Age: 41 Year
  Sex: Female

DRUGS (2)
  1. PACLITAXEL [Suspect]
     Active Substance: PACLITAXEL
     Indication: Cervix carcinoma recurrent
     Dosage: SIX CYCLES
     Route: 065
     Dates: start: 201307
  2. CARBOPLATIN [Suspect]
     Active Substance: CARBOPLATIN
     Indication: Cervix carcinoma recurrent
     Dosage: UNK, CYCLE , SIX CYCLES
     Route: 065
     Dates: start: 201307

REACTIONS (1)
  - Drug ineffective [Unknown]
